FAERS Safety Report 11079511 (Version 1)
Quarter: 2015Q2

REPORT INFORMATION
  Report Type: Spontaneous
  Country: US (occurrence: US)
  Receive Date: 20150430
  Receipt Date: 20150430
  Transmission Date: 20150821
  Serious: Yes (Other)
  Sender: FDA-Public Use
  Company Number: US-ASTRAZENECA-2015SE39311

PATIENT
  Sex: Male

DRUGS (4)
  1. HEPARIN [Concomitant]
     Active Substance: HEPARIN SODIUM
     Indication: THROMBOSIS IN DEVICE
  2. ASPIRIN. [Concomitant]
     Active Substance: ASPIRIN
     Indication: THROMBOSIS IN DEVICE
     Route: 048
  3. BRILINTA [Suspect]
     Active Substance: TICAGRELOR
     Indication: THROMBOSIS IN DEVICE
     Route: 048
  4. AGGRASTAT [Concomitant]
     Active Substance: TIROFIBAN HYDROCHLORIDE
     Indication: THROMBOSIS IN DEVICE
     Route: 048

REACTIONS (1)
  - Gastrointestinal haemorrhage [Unknown]
